FAERS Safety Report 7397366-X (Version None)
Quarter: 2011Q2

REPORT INFORMATION
  Report Type: 
  Country: None (occurrence: None)
  Receive Date: 20110406
  Receipt Date: 20110331
  Transmission Date: 20111010
  Serious: Yes (Life-Threatening, Hospitalization, Other)
  Sender: FDA-Public Use
  Company Number: CH-PFIZER INC-2011061951

PATIENT
  Age: 67 Year
  Sex: Male

DRUGS (19)
  1. TIOTROPIUM BROMIDE [Concomitant]
     Dosage: UNK
     Route: 055
     Dates: end: 20100720
  2. AMIODARONE [Interacting]
     Indication: ATRIAL FIBRILLATION
     Dosage: UNK
     Route: 042
     Dates: start: 20100710, end: 20100720
  3. METOLAZONE [Concomitant]
     Indication: DIURETIC THERAPY
  4. TRAMADOL [Concomitant]
     Indication: ANALGESIC THERAPY
     Dosage: UNK
     Dates: end: 20100720
  5. DICLOFENAC [Concomitant]
     Indication: ANALGESIC THERAPY
     Dosage: UNK
     Dates: end: 20100720
  6. PANTOPRAZOLE [Concomitant]
     Dosage: 40 MG, 1X/DAY
     Route: 042
  7. SILDENAFIL CITRATE [Concomitant]
     Dosage: UNK
     Dates: end: 20100720
  8. FLUCONAZOLE [Interacting]
     Indication: CANDIDA OSTEOMYELITIS
     Dosage: 400 MG, DAILY
     Route: 042
     Dates: start: 20100715, end: 20100701
  9. ESOMEPRAZOLE SODIUM [Concomitant]
     Dosage: UNK
     Dates: end: 20100701
  10. IPRATROPIUM BROMIDE [Concomitant]
     Dosage: UNK
     Route: 055
     Dates: end: 20100720
  11. ATORVASTATIN CALCIUM [Suspect]
     Dosage: 80 MG, 1X/DAY
     Dates: end: 20100701
  12. ATORVASTATIN CALCIUM [Interacting]
     Dosage: 40 MG, 1X/DAY
     Dates: start: 20100701, end: 20100717
  13. FUROSEMIDE [Concomitant]
     Indication: DIURETIC THERAPY
     Dosage: UNK
  14. POTASSIUM CHLORIDE [Concomitant]
     Dosage: UNK
     Dates: end: 20100720
  15. ALLOPURINOL [Concomitant]
     Dosage: 100 MG, 1X/DAY
     Dates: end: 20100720
  16. ASPIRIN [Concomitant]
     Dosage: 100 MG, 1X/DAY
     Dates: end: 20100720
  17. BISOPROLOL [Concomitant]
     Dosage: 10 MG, 1X/DAY
     Dates: end: 20100720
  18. RAMIPRIL [Concomitant]
     Dosage: UNK
     Dates: end: 20100720
  19. DALTEPARIN [Concomitant]
     Dosage: UNK
     Route: 058
     Dates: end: 20100720

REACTIONS (4)
  - DRUG INTERACTION [None]
  - RHABDOMYOLYSIS [None]
  - ELECTROLYTE IMBALANCE [None]
  - RENAL FAILURE ACUTE [None]
